FAERS Safety Report 6614578-0 (Version None)
Quarter: 2010Q1

REPORT INFORMATION
  Report Type: 
  Country: None (occurrence: None)
  Receive Date: 20100304
  Receipt Date: 20100304
  Transmission Date: 20100710
  Serious: No
  Sender: FDA-Public Use
  Company Number: None

PATIENT
  Sex: Male
  Weight: 77.1115 kg

DRUGS (17)
  1. EMBEDA [Suspect]
     Indication: NEUROPATHIC ARTHROPATHY
     Dosage: 20 MG - 50 MG BID PO
     Route: 048
     Dates: start: 20091117, end: 20100223
  2. EMBEDA [Suspect]
     Indication: PAIN
     Dosage: 20 MG - 50 MG BID PO
     Route: 048
     Dates: start: 20091117, end: 20100223
  3. GLUCOPHAGE [Concomitant]
  4. ACTOS [Concomitant]
  5. GLYCET [Concomitant]
  6. JANUVIA [Concomitant]
  7. LYRICA [Concomitant]
  8. ENTERIC ASA [Concomitant]
  9. BUPROPION HCL [Concomitant]
  10. RECLAST [Concomitant]
  11. M.V.I. [Concomitant]
  12. CALCIUM/VITAMIN D SUPPLEMENT [Concomitant]
  13. FISH OIL [Concomitant]
  14. VITAMIN B-12 [Concomitant]
  15. MIRALAX [Concomitant]
  16. DOCUSATE SOCIUM [Concomitant]
  17. ACETAMINOPHEN AND HYDROCODONE BITARTRATE [Concomitant]

REACTIONS (5)
  - ANXIETY [None]
  - DYSPNOEA [None]
  - IMPAIRED WORK ABILITY [None]
  - INSOMNIA [None]
  - PANIC REACTION [None]
